FAERS Safety Report 14185672 (Version 1)
Quarter: 2017Q4

REPORT INFORMATION
  Report Type: Spontaneous
  Country: CN (occurrence: CN)
  Receive Date: 20171114
  Receipt Date: 20171114
  Transmission Date: 20180321
  Serious: Yes (Other)
  Sender: FDA-Public Use
  Company Number: CN-JNJFOC-20171035222

PATIENT
  Age: 62 Year
  Sex: Male
  Weight: 53 kg

DRUGS (4)
  1. TYLENOL [Suspect]
     Active Substance: ACETAMINOPHEN
     Indication: PROCEDURAL PAIN
     Route: 048
     Dates: start: 20170913, end: 20170917
  2. DYNASTAT [Suspect]
     Active Substance: PARECOXIB SODIUM
     Indication: PROCEDURAL PAIN
     Route: 042
     Dates: start: 20170913, end: 20170917
  3. TYLENOL [Suspect]
     Active Substance: ACETAMINOPHEN
     Route: 048
  4. SODIUM CHLORIDE. [Concomitant]
     Active Substance: SODIUM CHLORIDE
     Indication: VEHICLE SOLUTION USE
     Route: 042
     Dates: start: 20170913, end: 20170916

REACTIONS (3)
  - Product use in unapproved indication [Unknown]
  - Transaminases increased [Recovered/Resolved]
  - Off label use [Unknown]

NARRATIVE: CASE EVENT DATE: 20170913
